FAERS Safety Report 13507319 (Version 1)
Quarter: 2017Q2

REPORT INFORMATION
  Report Type: Spontaneous
  Country: US (occurrence: US)
  Receive Date: 20170502
  Receipt Date: 20170502
  Transmission Date: 20170830
  Serious: Yes (Hospitalization)
  Sender: FDA-Public Use
  Company Number: None

PATIENT
  Age: 60 Year
  Sex: Female

DRUGS (20)
  1. CALCIUM/MAGN [Concomitant]
  2. METHOTREXATE. [Concomitant]
     Active Substance: METHOTREXATE
  3. BENICAR [Concomitant]
     Active Substance: OLMESARTAN MEDOXOMIL
  4. LISINOPRIL. [Concomitant]
     Active Substance: LISINOPRIL
  5. ENBREL [Suspect]
     Active Substance: ETANERCEPT
     Indication: MULTIPLE SCLEROSIS
     Dosage: ?          OTHER FREQUENCY:WEEKLY;?
     Route: 058
     Dates: start: 20150619
  6. METFORMIN [Concomitant]
     Active Substance: METFORMIN HYDROCHLORIDE
  7. EDECRIN [Concomitant]
     Active Substance: ETHACRYNIC ACID
  8. GLIPIZIDE. [Concomitant]
     Active Substance: GLIPIZIDE
  9. MICARDIS [Concomitant]
     Active Substance: TELMISARTAN
  10. DULOXETINE. [Concomitant]
     Active Substance: DULOXETINE
  11. PROVENTIL [Concomitant]
     Active Substance: ALBUTEROL
  12. FISH OIL [Concomitant]
     Active Substance: FISH OIL
  13. VITAMIN D2 [Concomitant]
     Active Substance: ERGOCALCIFEROL
  14. OMEPRAZOLE. [Concomitant]
     Active Substance: OMEPRAZOLE
  15. FOLIC ACID. [Concomitant]
     Active Substance: FOLIC ACID
  16. CARVEDILOL. [Concomitant]
     Active Substance: CARVEDILOL
  17. RAPAMUNE [Concomitant]
     Active Substance: SIROLIMUS
  18. FLUTICASONE. [Concomitant]
     Active Substance: FLUTICASONE
  19. VERAPAMIL [Concomitant]
     Active Substance: VERAPAMIL HYDROCHLORIDE
  20. TRAMADOL. [Concomitant]
     Active Substance: TRAMADOL

REACTIONS (1)
  - Herpes zoster [None]

NARRATIVE: CASE EVENT DATE: 20170502
